FAERS Safety Report 6815932-4 (Version None)
Quarter: 2010Q3

REPORT INFORMATION
  Report Type: 
  Country: None (occurrence: None)
  Receive Date: 20100705
  Receipt Date: 20100624
  Transmission Date: 20110219
  Serious: No
  Sender: FDA-Public Use
  Company Number: US-BIOGENIDEC-2010BI021888

PATIENT
  Sex: Female

DRUGS (3)
  1. TYSABRI [Suspect]
     Indication: MULTIPLE SCLEROSIS
     Route: 042
     Dates: start: 20080226
  2. PAIN MEDICATION (NOS) [Concomitant]
  3. TYLENOL [Concomitant]

REACTIONS (6)
  - ARTHRALGIA [None]
  - GENERAL SYMPTOM [None]
  - HEPATIC FUNCTION ABNORMAL [None]
  - MOBILITY DECREASED [None]
  - SOMNOLENCE [None]
  - URINARY TRACT INFECTION [None]
